FAERS Safety Report 14566013 (Version 1)
Quarter: 2018Q1

REPORT INFORMATION
  Report Type: Spontaneous
  Country: US (occurrence: US)
  Receive Date: 20180222
  Receipt Date: 20180222
  Transmission Date: 20180509
  Serious: No
  Sender: FDA-Public Use
  Company Number: None

PATIENT
  Age: 57 Year
  Sex: Female
  Weight: 89.09 kg

DRUGS (2)
  1. TAXOL [Suspect]
     Active Substance: PACLITAXEL
     Dates: end: 20171215
  2. ARIMIDEX [Suspect]
     Active Substance: ANASTROZOLE
     Dates: end: 20171015

REACTIONS (3)
  - Diarrhoea [None]
  - Treatment noncompliance [None]
  - Blood potassium decreased [None]

NARRATIVE: CASE EVENT DATE: 20171222
